FAERS Safety Report 15323100 (Version 1)
Quarter: 2018Q3

REPORT INFORMATION
  Report Type: Report from Study
  Country: US (occurrence: US)
  Receive Date: 20180827
  Receipt Date: 20180827
  Transmission Date: 20181010
  Serious: Yes (Hospitalization)
  Sender: FDA-Public Use
  Company Number: US-SHIRE-US201832812

PATIENT
  Age: 75 Year
  Sex: Male

DRUGS (1)
  1. GATTEX [Suspect]
     Active Substance: TEDUGLUTIDE\WATER
     Indication: SHORT-BOWEL SYNDROME
     Dosage: 5 MG, 1X/DAY:QD
     Route: 058
     Dates: start: 20171220

REACTIONS (1)
  - Infection [Unknown]

NARRATIVE: CASE EVENT DATE: 20180821
